APPROVED DRUG PRODUCT: DALIRESP
Active Ingredient: ROFLUMILAST
Strength: 250MCG
Dosage Form/Route: TABLET;ORAL
Application: N022522 | Product #002 | TE Code: AB
Applicant: ASTRAZENECA PHARMACEUTICALS LP
Approved: Jan 23, 2018 | RLD: Yes | RS: No | Type: RX